FAERS Safety Report 12103864 (Version 6)
Quarter: 2016Q2

REPORT INFORMATION
  Report Type: Report from Study
  Country: US (occurrence: US)
  Receive Date: 20160223
  Receipt Date: 20160601
  Transmission Date: 20160815
  Serious: Yes (Hospitalization, Other)
  Sender: FDA-Public Use
  Company Number: US-ROCHE-1712885

PATIENT
  Age: 62 Year
  Sex: Female
  Weight: 54.2 kg

DRUGS (11)
  1. VEMURAFENIB [Suspect]
     Active Substance: VEMURAFENIB
     Dosage: DOSE REDUCED
     Route: 048
     Dates: start: 20160313
  2. 5-FLUOROURACIL [Concomitant]
     Active Substance: FLUOROURACIL
     Route: 065
     Dates: start: 201507, end: 201509
  3. ZOSYN [Concomitant]
     Active Substance: PIPERACILLIN SODIUM\TAZOBACTAM SODIUM
  4. VEMURAFENIB [Suspect]
     Active Substance: VEMURAFENIB
     Indication: ADENOCARCINOMA OF COLON
     Dosage: LAST DOSE PRIOR TO SERIOUS ADVERSE EVENT ON 08/FEB/2016?TREATMENT ARM 3: S/P CYCLE 2 DAY 1
     Route: 048
     Dates: start: 20150211
  5. CETUXIMAB [Suspect]
     Active Substance: CETUXIMAB
     Indication: ADENOCARCINOMA OF COLON
     Dosage: LAST DOSE PRIOR TO SERIOUS ADVERSE EVENT ON 11/JAN/2016, MOST RECENT DOSE ON 29/FEB/2016 (766MG)?TRE
     Route: 042
     Dates: start: 20150211
  6. IRINOTECAN [Suspect]
     Active Substance: IRINOTECAN
     Route: 042
     Dates: start: 201412, end: 201506
  7. 5-FLUOROURACIL [Concomitant]
     Active Substance: FLUOROURACIL
     Route: 065
     Dates: start: 201412, end: 201506
  8. IRINOTECAN [Suspect]
     Active Substance: IRINOTECAN
     Indication: ADENOCARCINOMA OF COLON
     Dosage: LAST DOSE PRIOR TO SERIOUS ADVERSE EVENT ON 11/JAN/2016, MOST RECENT DOSE ON 29/FEB/2016 (280 MG)?TR
     Route: 042
     Dates: start: 20150211
  9. BEVACIZUMAB [Concomitant]
     Active Substance: BEVACIZUMAB
     Route: 065
     Dates: start: 201412, end: 201506
  10. 5-FLUOROURACIL [Concomitant]
     Active Substance: FLUOROURACIL
     Route: 065
     Dates: start: 201409, end: 201411
  11. PLAQUENIL [Concomitant]
     Active Substance: HYDROXYCHLOROQUINE SULFATE

REACTIONS (5)
  - Gastritis [Recovering/Resolving]
  - Upper respiratory tract infection [Recovering/Resolving]
  - Neutrophil count decreased [Recovering/Resolving]
  - Rash maculo-papular [Recovering/Resolving]
  - Dermatitis acneiform [Recovering/Resolving]

NARRATIVE: CASE EVENT DATE: 20160208
